FAERS Safety Report 13003533 (Version 1)
Quarter: 2016Q4

REPORT INFORMATION
  Report Type: Spontaneous
  Country: CN (occurrence: CN)
  Receive Date: 20161206
  Receipt Date: 20161206
  Transmission Date: 20170207
  Serious: Yes (Other)
  Sender: FDA-Public Use
  Company Number: CN-ABBVIE-16P-035-1792822-00

PATIENT
  Age: 24 Year
  Sex: Female
  Weight: 58 kg

DRUGS (3)
  1. PANTOPRAZOLE SODIUM. [Suspect]
     Active Substance: PANTOPRAZOLE SODIUM
     Indication: DUODENAL ULCER
     Route: 048
     Dates: start: 20160802, end: 20160802
  2. KLACID [Suspect]
     Active Substance: CLARITHROMYCIN
     Indication: DUODENAL ULCER
     Route: 048
     Dates: start: 20160802, end: 20160802
  3. LIZHU DELE [Concomitant]
     Indication: DUODENAL ULCER
     Route: 048
     Dates: start: 20160802, end: 20160802

REACTIONS (3)
  - Cyanosis [Recovering/Resolving]
  - Abdominal pain [Recovering/Resolving]
  - Hyperhidrosis [Recovering/Resolving]

NARRATIVE: CASE EVENT DATE: 20160802
